FAERS Safety Report 8198168-7 (Version None)
Quarter: 2012Q1

REPORT INFORMATION
  Report Type: 
  Country: None (occurrence: None)
  Receive Date: 20120309
  Receipt Date: 20111205
  Transmission Date: 20120608
  Serious: No
  Sender: FDA-Public Use
  Company Number: US-AMGEN-USASP2011064568

PATIENT
  Age: 72 Year
  Sex: Female

DRUGS (9)
  1. RYTHMOL [Concomitant]
  2. VITAMIN D [Concomitant]
  3. PROBIOTIC [Concomitant]
  4. PROLIA [Suspect]
     Indication: OSTEOPOROSIS POSTMENOPAUSAL
     Dosage: UNK UNK, Q6MO
     Dates: start: 20110628
  5. CELEBREX [Concomitant]
  6. ASPIRIN [Concomitant]
     Dosage: UNK
  7. CALCIUM CARBONATE [Concomitant]
     Dosage: UNK
  8. PRILOSEC [Concomitant]
     Dosage: UNK
  9. MULTI-VITAMIN [Concomitant]

REACTIONS (2)
  - HYPERCHOLESTEROLAEMIA [None]
  - PAIN IN EXTREMITY [None]
